FAERS Safety Report 18540379 (Version 1)
Quarter: 2020Q4

REPORT INFORMATION
  Report Type: Spontaneous
  Country: BR (occurrence: BR)
  Receive Date: 20201124
  Receipt Date: 20201124
  Transmission Date: 20210114
  Serious: Yes (Other)
  Sender: FDA-Public Use
  Company Number: BR-PFIZER INC-2020456973

PATIENT
  Sex: Female

DRUGS (1)
  1. FRONTAL [Suspect]
     Active Substance: ALPRAZOLAM
     Dosage: UNK

REACTIONS (7)
  - Insomnia [Unknown]
  - Depressed mood [Unknown]
  - Blood pressure increased [Unknown]
  - Feeling of despair [Unknown]
  - Nightmare [Unknown]
  - Dyspepsia [Unknown]
  - Decreased appetite [Unknown]
